FAERS Safety Report 12241544 (Version 1)
Quarter: 2016Q2

REPORT INFORMATION
  Report Type: Spontaneous
  Country: CA (occurrence: CA)
  Receive Date: 20160406
  Receipt Date: 20160406
  Transmission Date: 20160815
  Serious: Yes (Other)
  Sender: FDA-Public Use
  Company Number: CA-SUN PHARMACEUTICAL INDUSTRIES LTD-2016US-114039

PATIENT
  Age: 14 Year
  Sex: Female

DRUGS (1)
  1. TETRACYCLINE [Suspect]
     Active Substance: TETRACYCLINE
     Indication: ACNE
     Dosage: UNK
     Route: 048

REACTIONS (1)
  - Intracranial pressure increased [Recovered/Resolved]
